FAERS Safety Report 9194324 (Version 1)
Quarter: 2013Q1

REPORT INFORMATION
  Report Type: Spontaneous
  Country: US (occurrence: US)
  Receive Date: 20130325
  Receipt Date: 20130325
  Transmission Date: 20140127
  Serious: Yes (Other)
  Sender: FDA-Public Use
  Company Number: US-PW/021025/588

PATIENT
  Sex: Female

DRUGS (6)
  1. BUPRENORPHINE [Suspect]
     Indication: PRODUCT USED FOR UNKNOWN INDICATION
     Dosage: 12 MG TOTAL ON DAY 1, AND 12 MG ON DAY 2
     Route: 065
     Dates: start: 200210, end: 20021022
  2. METHADONE [Suspect]
     Indication: PRODUCT USED FOR UNKNOWN INDICATION
     Dosage: 85 MG AT THE TIME OF SWITCHING TO MORPHINE
     Route: 065
     Dates: end: 20021016
  3. METHADONE [Suspect]
     Dosage: DOSING DETAILS UNKNOWN
     Route: 065
     Dates: start: 2002
  4. HEROIN [Suspect]
     Indication: PRODUCT USED FOR UNKNOWN INDICATION
     Dosage: DRUG DETAILS UNKNOWN
     Route: 065
     Dates: start: 20021021
  5. COCAINE [Suspect]
     Indication: PRODUCT USED FOR UNKNOWN INDICATION
     Dosage: DRUG DETAILS UNKNOWN
     Route: 065
     Dates: start: 200210
  6. MORPHINE [Suspect]
     Indication: PRODUCT USED FOR UNKNOWN INDICATION
     Dosage: DOSING DETAILS ONLY SPECIFIED AS 450 MG - PRIOR TO BUPRENORPHINE
     Route: 065
     Dates: start: 20021016, end: 20021020

REACTIONS (3)
  - Oligohydramnios [Unknown]
  - Exposure during pregnancy [Recovered/Resolved]
  - Drug abuse [Unknown]
